FAERS Safety Report 17930554 (Version 1)
Quarter: 2020Q2

REPORT INFORMATION
  Report Type: Report from Study
  Country: None (occurrence: US)
  Receive Date: 20200623
  Receipt Date: 20200623
  Transmission Date: 20200714
  Serious: No
  Sender: FDA-Public Use
  Company Number: US-BIOVITRUM-2019US1099

PATIENT
  Sex: Female

DRUGS (7)
  1. KINERET [Suspect]
     Active Substance: ANAKINRA
     Route: 058
     Dates: start: 20190510
  2. PANTOPRAZOLE [Concomitant]
     Active Substance: PANTOPRAZOLE
  3. COLCHICINE. [Concomitant]
     Active Substance: COLCHICINE
  4. RELIZEN [Concomitant]
     Active Substance: DIETARY SUPPLEMENT\HERBALS
  5. CARAFATE [Concomitant]
     Active Substance: SUCRALFATE
  6. IBUPROFEN. [Concomitant]
     Active Substance: IBUPROFEN
  7. PREDNISONE. [Concomitant]
     Active Substance: PREDNISONE
     Dosage: DOSE 2.5 MG

REACTIONS (5)
  - Injection site pain [Not Recovered/Not Resolved]
  - Night sweats [Unknown]
  - Injection site urticaria [Unknown]
  - Hot flush [Unknown]
  - Injection site bruising [Unknown]
